FAERS Safety Report 14596130 (Version 1)
Quarter: 2018Q1

REPORT INFORMATION
  Report Type: Report from Study
  Country: FR (occurrence: FR)
  Receive Date: 20180303
  Receipt Date: 20180303
  Transmission Date: 20180509
  Serious: Yes (Other)
  Sender: FDA-Public Use
  Company Number: FR-GLAXOSMITHKLINE-FR2018031833

PATIENT
  Age: 37 Year
  Sex: Female

DRUGS (6)
  1. NELFINAVIR [Suspect]
     Active Substance: NELFINAVIR
     Indication: ANTIRETROVIRAL THERAPY
     Dosage: UNK
     Route: 048
  2. EFAVIRENZ. [Suspect]
     Active Substance: EFAVIRENZ
     Indication: ANTIRETROVIRAL THERAPY
     Dosage: 600 MG, QD
     Route: 048
     Dates: start: 20000511
  3. STAVUDINE. [Suspect]
     Active Substance: STAVUDINE
     Indication: ANTIRETROVIRAL THERAPY
     Dosage: 80 MG, QD
     Route: 048
     Dates: start: 19970902
  4. LAMIVUDINE. [Suspect]
     Active Substance: LAMIVUDINE
     Indication: ANTIRETROVIRAL THERAPY
     Dosage: 300 MG, QD
     Route: 048
     Dates: start: 19960814
  5. ZIDOVUDINE. [Suspect]
     Active Substance: ZIDOVUDINE
     Indication: ANTIRETROVIRAL THERAPY
     Dosage: UNK
     Route: 042
  6. DIDANOSINE. [Suspect]
     Active Substance: DIDANOSINE
     Indication: ANTIRETROVIRAL THERAPY
     Dosage: UNK
     Route: 048

REACTIONS (3)
  - Normal newborn [Unknown]
  - Exposure during pregnancy [Unknown]
  - Gestational diabetes [Unknown]

NARRATIVE: CASE EVENT DATE: 20001221
